FAERS Safety Report 18750826 (Version 1)
Quarter: 2021Q1

REPORT INFORMATION
  Report Type: Spontaneous
  Country: IT (occurrence: IT)
  Receive Date: 20210118
  Receipt Date: 20210118
  Transmission Date: 20210419
  Serious: Yes (Death, Life-Threatening, Hospitalization, Other)
  Sender: FDA-Public Use
  Company Number: IT-HIKMA PHARMACEUTICALS USA INC.-IT-H14001-21-53329

PATIENT
  Age: 83 Year
  Sex: Male

DRUGS (2)
  1. AMIODARONE [Suspect]
     Active Substance: AMIODARONE
     Indication: PRODUCT USED FOR UNKNOWN INDICATION
     Route: 041
  2. AMIODARONE [Suspect]
     Active Substance: AMIODARONE
     Route: 040

REACTIONS (3)
  - Hepatotoxicity [Fatal]
  - Hepatic failure [Fatal]
  - Drug-induced liver injury [Fatal]
